FAERS Safety Report 8831490 (Version 2)
Quarter: 2013Q2

REPORT INFORMATION
  Report Type: Report from Study
  Country: AT (occurrence: AT)
  Receive Date: 20121009
  Receipt Date: 20130506
  Transmission Date: 20140414
  Serious: Yes (Hospitalization)
  Sender: FDA-Public Use
  Company Number: AT-ROCHE-1139037

PATIENT
  Age: 56 Year
  Sex: Female
  Weight: 54 kg

DRUGS (8)
  1. CAPECITABINE [Suspect]
     Indication: RECTAL CANCER
     Route: 048
     Dates: start: 20120404, end: 20120530
  2. BEVACIZUMAB [Suspect]
     Indication: RECTAL CANCER
     Route: 042
     Dates: start: 20120404, end: 20120516
  3. OXALIPLATIN [Suspect]
     Indication: RECTAL CANCER
     Route: 042
     Dates: start: 20120404, end: 20120516
  4. ZOLDEM [Concomitant]
     Indication: INSOMNIA
     Route: 048
     Dates: start: 20120601, end: 20120603
  5. PASPERTIN [Concomitant]
     Indication: NAUSEA
     Dosage: 20 DROPS
     Route: 042
     Dates: start: 20120601, end: 20120603
  6. BUSCOPAN [Concomitant]
     Indication: ABDOMINAL PAIN
     Route: 065
     Dates: start: 20120601, end: 20120602
  7. ZOFRAN [Concomitant]
     Indication: NAUSEA
     Route: 065
  8. GUTTALAX [Concomitant]
     Indication: CONSTIPATION
     Dosage: 3 TO 5 DROPS
     Route: 065

REACTIONS (3)
  - Mucosal inflammation [Recovered/Resolved]
  - Febrile neutropenia [Recovered/Resolved]
  - Device related infection [Recovered/Resolved]
